FAERS Safety Report 21081164 (Version 1)
Quarter: 2022Q3

REPORT INFORMATION
  Report Type: Spontaneous
  Country: PL (occurrence: PL)
  Receive Date: 20220714
  Receipt Date: 20220714
  Transmission Date: 20221026
  Serious: Yes (Other)
  Sender: FDA-Public Use
  Company Number: PL-SUN PHARMACEUTICAL INDUSTRIES LTD-2022RR-344448

PATIENT
  Age: 39 Year
  Sex: Female

DRUGS (6)
  1. BISOPROLOL [Suspect]
     Active Substance: BISOPROLOL
     Indication: Arrhythmia
     Dosage: 2.5 MILLIGRAM, UNK
     Route: 065
  2. AMIODARONE [Suspect]
     Active Substance: AMIODARONE
     Indication: Arrhythmia
     Dosage: UNK
     Route: 042
  3. METOPROLOL [Suspect]
     Active Substance: METOPROLOL
     Indication: Arrhythmia
     Dosage: UNK
     Route: 065
  4. LIDOCAINE HYDROCHLORIDE [Suspect]
     Active Substance: LIDOCAINE HYDROCHLORIDE
     Indication: Arrhythmia
     Dosage: UNK
     Route: 065
  5. MAGNESIUM SULFATE [Suspect]
     Active Substance: MAGNESIUM SULFATE
     Indication: Arrhythmia
     Dosage: UNK
     Route: 065
  6. ADENOSINE [Suspect]
     Active Substance: ADENOSINE
     Indication: Arrhythmia
     Dosage: UNK
     Route: 065

REACTIONS (2)
  - Drug ineffective [Unknown]
  - Ventricular tachycardia [Unknown]
